FAERS Safety Report 19370000 (Version 2)
Quarter: 2021Q2

REPORT INFORMATION
  Report Type: Spontaneous
  Country: US (occurrence: US)
  Receive Date: 20210603
  Receipt Date: 20210616
  Transmission Date: 20210717
  Serious: Yes (Hospitalization)
  Sender: FDA-Public Use
  Company Number: US-TEVA-2021-US-1917540

PATIENT
  Age: 75 Year
  Sex: Female

DRUGS (1)
  1. PREDNISONE. [Suspect]
     Active Substance: PREDNISONE
     Indication: POLYMYALGIA RHEUMATICA
     Route: 065

REACTIONS (3)
  - Paravalvular regurgitation [Recovering/Resolving]
  - Heart valve incompetence [Recovering/Resolving]
  - Mitral valve incompetence [Recovering/Resolving]
